FAERS Safety Report 6709044-8 (Version None)
Quarter: 2010Q2

REPORT INFORMATION
  Report Type: 
  Country: None (occurrence: None)
  Receive Date: 20100504
  Receipt Date: 20100423
  Transmission Date: 20101027
  Serious: Yes (Hospitalization, Other)
  Sender: FDA-Public Use
  Company Number: US-BAYER-200715527NA

PATIENT
  Age: 33 Year
  Sex: Female

DRUGS (4)
  1. BETASERON [Suspect]
     Indication: PROGRESSIVE MULTIPLE SCLEROSIS
     Dosage: TOTAL DAILY DOSE: 8 MIU
     Route: 058
     Dates: start: 20060602, end: 20071130
  2. BETASERON [Suspect]
     Dosage: TOTAL DAILY DOSE: 8 MIU
     Route: 058
  3. SOLU-MEDROL [Concomitant]
     Indication: CENTRAL NERVOUS SYSTEM LESION
     Dosage: TOTAL DAILY DOSE: 1 G
     Route: 042
     Dates: start: 20070101
  4. PROVIGIL [Concomitant]
     Dosage: TOTAL DAILY DOSE: 100 MG

REACTIONS (6)
  - CARDIAC DISORDER [None]
  - DEPRESSION [None]
  - DIABETES MELLITUS [None]
  - FATIGUE [None]
  - MYOCARDIAL INFARCTION [None]
  - PALPITATIONS [None]
